FAERS Safety Report 24914718 (Version 1)
Quarter: 2025Q1

REPORT INFORMATION
  Report Type: Spontaneous
  Country: SE (occurrence: SE)
  Receive Date: 20250203
  Receipt Date: 20250203
  Transmission Date: 20250408
  Serious: Yes (Life-Threatening)
  Sender: NOVO NORDISK
  Company Number: None

PATIENT
  Age: 59 Year
  Sex: Female
  Weight: 117 kg

DRUGS (1)
  1. WEGOVY [Suspect]
     Active Substance: SEMAGLUTIDE
     Indication: Product used for unknown indication
     Route: 058
     Dates: start: 20250108, end: 20250115

REACTIONS (6)
  - Palpitations [Unknown]
  - Dizziness [Unknown]
  - Cold sweat [Unknown]
  - Hypoglycaemia [Unknown]
  - Gastrointestinal disorder [Not Recovered/Not Resolved]
  - Syncope [Unknown]

NARRATIVE: CASE EVENT DATE: 20250108
